FAERS Safety Report 14036671 (Version 3)
Quarter: 2017Q4

REPORT INFORMATION
  Report Type: Report from Study
  Country: US (occurrence: US)
  Receive Date: 20171003
  Receipt Date: 20171024
  Transmission Date: 20180321
  Serious: Yes (Disabling)
  Sender: FDA-Public Use
  Company Number: US-IPSEN BIOPHARMACEUTICALS, INC.-2017-10908

PATIENT
  Age: 57 Year
  Sex: Female
  Weight: 88.45 kg

DRUGS (6)
  1. METFORMIN [Interacting]
     Active Substance: METFORMIN HYDROCHLORIDE
     Indication: DIABETES MELLITUS
     Dates: start: 2011, end: 201709
  2. METFORMIN [Interacting]
     Active Substance: METFORMIN HYDROCHLORIDE
     Dates: start: 201709
  3. SOMATULINE DEPOT [Suspect]
     Active Substance: LANREOTIDE ACETATE
     Indication: CARCINOID TUMOUR OF THE SMALL BOWEL
     Dosage: 120 MG
     Route: 065
     Dates: start: 20170730
  4. SOMATULINE DEPOT [Interacting]
     Active Substance: LANREOTIDE ACETATE
     Indication: CARCINOID TUMOUR
  5. INSULIN [Interacting]
     Active Substance: INSULIN NOS
     Indication: DIABETES MELLITUS
     Dates: end: 201709
  6. INSULIN [Interacting]
     Active Substance: INSULIN NOS
     Dates: start: 201709

REACTIONS (16)
  - Nausea [Not Recovered/Not Resolved]
  - Diarrhoea [Unknown]
  - Muscle spasms [Unknown]
  - Drug administration error [Unknown]
  - Product physical consistency issue [Unknown]
  - Inappropriate schedule of drug administration [Unknown]
  - Muscle spasms [Recovering/Resolving]
  - Injection site bruising [Not Recovered/Not Resolved]
  - Drug interaction [Unknown]
  - Injection site pain [Recovering/Resolving]
  - Headache [Unknown]
  - Malaise [Unknown]
  - Presyncope [Unknown]
  - Injection site haemorrhage [Recovered/Resolved]
  - Glycosylated haemoglobin increased [Unknown]
  - Injection site nodule [Recovering/Resolving]

NARRATIVE: CASE EVENT DATE: 2017
